FAERS Safety Report 12273339 (Version 1)
Quarter: 2016Q2

REPORT INFORMATION
  Report Type: Not Available
  Country: None (occurrence: US)
  Receive Date: 20160415
  Receipt Date: 20160415
  Transmission Date: 20160815
  Serious: No
  Sender: FDA-Public Use
  Company Number: US-AKORN-17815

PATIENT
  Age: 77 Year
  Sex: Female

DRUGS (1)
  1. AZASITE [Suspect]
     Active Substance: AZITHROMYCIN MONOHYDRATE

REACTIONS (3)
  - Product physical issue [None]
  - Product quality issue [None]
  - Eye irritation [Recovered/Resolved]

NARRATIVE: CASE EVENT DATE: 20151006
